FAERS Safety Report 5426340-5 (Version None)
Quarter: 2007Q3

REPORT INFORMATION
  Report Type: 
  Country: None (occurrence: None)
  Receive Date: 20070827
  Receipt Date: 20070821
  Transmission Date: 20080115
  Serious: Yes (Death)
  Sender: FDA-Public Use
  Company Number: FI-ASTRAZENECA-2007SE01377

PATIENT
  Sex: Male

DRUGS (11)
  1. SEROQUEL [Suspect]
     Indication: AFFECTIVE DISORDER
     Route: 048
     Dates: start: 20061211
  2. LIPITOR [Concomitant]
  3. CIPRALEX [Concomitant]
     Indication: DEPRESSION
  4. TENOX [Concomitant]
     Dosage: 20 MG X 2 BUT OFTEN TOOK FOUR TABLETS
  5. VOLTAREN [Concomitant]
  6. LYRICA [Concomitant]
  7. LISINOPRIL [Concomitant]
  8. METFOREM [Concomitant]
  9. DISOPROLOL [Concomitant]
  10. EFFEXOR [Concomitant]
     Indication: NEURALGIA
  11. PRIMASPAN [Concomitant]
     Indication: CORONARY ARTERY DISEASE

REACTIONS (2)
  - COMPLETED SUICIDE [None]
  - MULTIPLE DRUG OVERDOSE INTENTIONAL [None]
